FAERS Safety Report 17390683 (Version 1)
Quarter: 2020Q1

REPORT INFORMATION
  Report Type: Report from Study
  Country: CA (occurrence: CA)
  Receive Date: 20200207
  Receipt Date: 20200207
  Transmission Date: 20200409
  Serious: Yes (Hospitalization, Other)
  Sender: FDA-Public Use
  Company Number: CA-009507513-2001CAN009072

PATIENT
  Age: 63 Year
  Sex: Female
  Weight: 48 kg

DRUGS (1)
  1. TEMODAL [Suspect]
     Active Substance: TEMOZOLOMIDE
     Indication: GLIOBLASTOMA MULTIFORME
     Dosage: 110 MILLIGRAM, DAILY X 42 DAYS
     Route: 048
     Dates: start: 20190515, end: 20190626

REACTIONS (5)
  - Oral candidiasis [Recovered/Resolved]
  - Candida infection [Unknown]
  - Mucosal inflammation [Unknown]
  - Neutropenia [Recovered/Resolved]
  - Drug intolerance [Unknown]

NARRATIVE: CASE EVENT DATE: 20190717
